FAERS Safety Report 8596089-9 (Version None)
Quarter: 2012Q3

REPORT INFORMATION
  Report Type: 
  Country: None (occurrence: None)
  Receive Date: 20120815
  Receipt Date: 20120806
  Transmission Date: 20120928
  Serious: Yes (Death, Hospitalization, Other)
  Sender: FDA-Public Use
  Company Number: BE-ROCHE-760434

PATIENT
  Age: 77 Year
  Sex: Female
  Weight: 66 kg

DRUGS (1)
  1. AVASTIN [Suspect]
     Indication: COLORECTAL CANCER
     Route: 042

REACTIONS (8)
  - ASTHENIA [None]
  - PULMONARY EMBOLISM [None]
  - INSOMNIA [None]
  - URINARY TRACT INFECTION [None]
  - ENTEROVESICAL FISTULA [None]
  - DYSURIA [None]
  - BLOOD BILIRUBIN INCREASED [None]
  - PERIPHERAL SENSORY NEUROPATHY [None]
